FAERS Safety Report 6843021-1 (Version None)
Quarter: 2010Q3

REPORT INFORMATION
  Report Type: 
  Country: None (occurrence: None)
  Receive Date: 20100714
  Receipt Date: 20100313
  Transmission Date: 20110219
  Serious: No
  Sender: FDA-Public Use
  Company Number: US-PFIZER INC-2007066119

PATIENT
  Sex: Female
  Weight: 65.76 kg

DRUGS (5)
  1. CHANTIX [Suspect]
     Indication: SMOKING CESSATION THERAPY
     Dosage: 1 MG, 2X/DAY
     Route: 048
     Dates: start: 20070801
  2. CHANTIX [Suspect]
     Dosage: 0.5 MG, 1X/DAY
     Route: 048
     Dates: start: 20100301
  3. BENICAR HCT [Concomitant]
     Indication: HYPERTENSION
     Dosage: UNK
  4. HERBAL PREPARATION [Concomitant]
     Dosage: UNK
  5. ZOLOFT [Concomitant]
     Indication: ANXIETY
     Dosage: 150 MG, UNK
     Route: 048

REACTIONS (3)
  - DRUG ADMINISTRATION ERROR [None]
  - INSOMNIA [None]
  - MEMORY IMPAIRMENT [None]
